FAERS Safety Report 17319922 (Version 1)
Quarter: 2020Q1

REPORT INFORMATION
  Report Type: Report from Study
  Country: US (occurrence: US)
  Receive Date: 20200126
  Receipt Date: 20200126
  Transmission Date: 20200409
  Serious: Yes (Hospitalization)
  Sender: FDA-Public Use
  Company Number: NVSC2020US016768

PATIENT
  Sex: Male

DRUGS (8)
  1. VINCRISTINE [Suspect]
     Active Substance: VINCRISTINE
     Indication: ACUTE LYMPHOCYTIC LEUKAEMIA
     Dosage: UNK
     Route: 042
     Dates: start: 20190218, end: 20191220
  2. INC424A [Suspect]
     Active Substance: RUXOLITINIB
     Indication: ACUTE LYMPHOCYTIC LEUKAEMIA
     Dosage: UNK
     Route: 048
     Dates: start: 20190218, end: 20191205
  3. VINCRISTINE [Suspect]
     Active Substance: VINCRISTINE
     Dosage: UNK
     Route: 042
     Dates: start: 20200113
  4. PEGASPARGASE [Suspect]
     Active Substance: PEGASPARGASE
     Dosage: UNK
     Route: 042
     Dates: start: 20200113
  5. INC424A [Suspect]
     Active Substance: RUXOLITINIB
     Dosage: 110 MG, BID
     Route: 048
     Dates: start: 20200113
  6. METHOTREXATE. [Suspect]
     Active Substance: METHOTREXATE
     Dosage: UNK
     Route: 037
     Dates: start: 20200113
  7. PEGASPARGASE [Suspect]
     Active Substance: PEGASPARGASE
     Indication: ACUTE LYMPHOCYTIC LEUKAEMIA
     Dosage: UNK
     Route: 042
     Dates: start: 20191218, end: 20191220
  8. METHOTREXATE. [Suspect]
     Active Substance: METHOTREXATE
     Indication: ACUTE LYMPHOCYTIC LEUKAEMIA
     Dosage: UNK
     Route: 042
     Dates: start: 20190218, end: 20191220

REACTIONS (1)
  - Colitis [Recovered/Resolved]

NARRATIVE: CASE EVENT DATE: 20191231
